FAERS Safety Report 21928209 (Version 2)
Quarter: 2023Q1

REPORT INFORMATION
  Report Type: Report from Study
  Country: ES (occurrence: ES)
  Receive Date: 20230130
  Receipt Date: 20230222
  Transmission Date: 20230417
  Serious: Yes (Other)
  Sender: FDA-Public Use
  Company Number: ES-SEATTLE GENETICS-2023SGN01000

PATIENT
  Age: 77 Year
  Sex: Male
  Weight: 94 kg

DRUGS (5)
  1. TISOTUMAB VEDOTIN [Suspect]
     Active Substance: TISOTUMAB VEDOTIN
     Indication: Non-small cell lung cancer
     Dosage: 1.7 MG/KG, ON DAY 1 AND 15 OF EVERY 28 DAY CYCLE (2Q4W REGIMEN)
     Route: 042
     Dates: start: 20221215, end: 20221230
  2. UMECLIDINIUM BROMIDE\VILANTEROL TRIFENATATE [Concomitant]
     Active Substance: UMECLIDINIUM BROMIDE\VILANTEROL TRIFENATATE
     Dosage: 55/22 QD
  3. FUROSEMIDE [Concomitant]
     Active Substance: FUROSEMIDE
     Dosage: 40 MG, QD
  4. ZOLPIDEM [Concomitant]
     Active Substance: ZOLPIDEM TARTRATE
     Dosage: 10 MG, QD
  5. TACROLIMUS [Concomitant]
     Active Substance: TACROLIMUS
     Dosage: 0.03 % (1 DROP PER NIGHT)

REACTIONS (1)
  - Symblepharon [Not Recovered/Not Resolved]

NARRATIVE: CASE EVENT DATE: 20230126
